FAERS Safety Report 24175463 (Version 1)
Quarter: 2024Q3

REPORT INFORMATION
  Report Type: Report from Study
  Country: US (occurrence: US)
  Receive Date: 20240805
  Receipt Date: 20240805
  Transmission Date: 20241017
  Serious: Yes (Hospitalization)
  Sender: NOVARTIS
  Company Number: US-002147023-NVSC2024US123803

PATIENT
  Age: 16 Year
  Sex: Female

DRUGS (5)
  1. ILARIS [Suspect]
     Active Substance: CANAKINUMAB
     Indication: Cryopyrin associated periodic syndrome
     Dosage: 150 MG, ONCE EVERY 3 WEEKS
     Route: 058
     Dates: start: 20170505
  2. ILARIS [Suspect]
     Active Substance: CANAKINUMAB
     Dosage: 150 MG, OTHER (EVERY 3 WEEKS)
     Route: 058
     Dates: start: 20191001
  3. ILARIS [Suspect]
     Active Substance: CANAKINUMAB
     Dosage: 150 MG, OTHER, EVERY 3 WEEKS
     Route: 058
     Dates: start: 20210122
  4. ILARIS [Suspect]
     Active Substance: CANAKINUMAB
     Dosage: 150 MG, OTHER, EVERY 3 WEEKS
     Route: 058
     Dates: start: 20240610
  5. ILARIS [Suspect]
     Active Substance: CANAKINUMAB
     Dosage: UNK, EVERY 3 WEEKS
     Route: 065
     Dates: start: 20240410

REACTIONS (6)
  - Urinary tract infection [Unknown]
  - Inappropriate schedule of product administration [Unknown]
  - Injection site pain [Unknown]
  - Injection site bruising [Unknown]
  - Incorrect dose administered [Unknown]
  - Abdominal discomfort [Unknown]

NARRATIVE: CASE EVENT DATE: 20240301
